FAERS Safety Report 8845037 (Version 1)
Quarter: 2012Q4

REPORT INFORMATION
  Report Type: 
  Country: GB (occurrence: GB)
  Receive Date: 20121017
  Receipt Date: 20121017
  Transmission Date: 20130627
  Serious: Yes (Other)
  Sender: FDA-Public Use
  Company Number: GB-PFIZER INC-2012254236

PATIENT
  Age: 82 Year
  Sex: Male

DRUGS (8)
  1. SPIRONOLACTONE [Suspect]
     Indication: HYPERTENSION
     Dates: start: 20100619, end: 20100629
  2. INSULIN [Concomitant]
     Indication: DIABETES MELLITUS
     Dosage: 22iu in the morning and 16iu at night
  3. CANDESARTAN [Concomitant]
     Dosage: UNK
  4. FRUSEMIDE [Concomitant]
     Dosage: UNK
  5. COD-LIVER OIL [Concomitant]
     Dosage: UNK
  6. GLUCOSAMINE [Concomitant]
     Dosage: Was on them but didn^t stay on for long
  7. NASEPTIN [Concomitant]
     Indication: NASAL DRYNESS
  8. PEPPERMINT OIL [Concomitant]
     Indication: HERNIA

REACTIONS (18)
  - Muscular weakness [Recovering/Resolving]
  - Swelling [Recovering/Resolving]
  - Abdominal discomfort [Recovering/Resolving]
  - Gingival pain [Recovering/Resolving]
  - Glossodynia [Recovering/Resolving]
  - Hypoaesthesia [Recovering/Resolving]
  - Headache [Recovering/Resolving]
  - Visual impairment [Not Recovered/Not Resolved]
  - Weight increased [Recovering/Resolving]
  - Waist circumference increased [Recovering/Resolving]
  - Fall [Recovering/Resolving]
  - Lip swelling [Recovering/Resolving]
  - Cough [Unknown]
  - Hiatus hernia [Unknown]
  - Diabetes mellitus [Unknown]
  - Body height decreased [Unknown]
  - Vision blurred [Recovering/Resolving]
  - Eye disorder [Unknown]
